FAERS Safety Report 6336444-0 (Version None)
Quarter: 2009Q3

REPORT INFORMATION
  Report Type: 
  Country: None (occurrence: None)
  Receive Date: 20090831
  Receipt Date: 20090831
  Transmission Date: 20100115
  Serious: Yes (Life-Threatening, Other)
  Sender: FDA-Public Use
  Company Number: None

PATIENT
  Age: 27 Year
  Sex: Male
  Weight: 108.8633 kg

DRUGS (1)
  1. AMPHETAMINES [Suspect]
     Dosage: 1 TABLET 3 TIMES  A DAY PO
     Route: 048
     Dates: start: 20090806, end: 20090828

REACTIONS (2)
  - HYPERTENSION [None]
  - PRODUCT QUALITY ISSUE [None]
